FAERS Safety Report 12698578 (Version 2)
Quarter: 2018Q4

REPORT INFORMATION
  Report Type: Report from Study
  Country: US (occurrence: US)
  Receive Date: 20160830
  Receipt Date: 20181018
  Transmission Date: 20190204
  Serious: Yes (Death, Other)
  Sender: FDA-Public Use
  Company Number: US-SA-2016SA136609

PATIENT
  Age: 58 Year
  Sex: Female

DRUGS (13)
  1. TERIFLUNOMIDE. [Suspect]
     Active Substance: TERIFLUNOMIDE
     Indication: MULTIPLE SCLEROSIS RELAPSE
     Dosage: 14 MG, QD
     Route: 048
     Dates: start: 20141211, end: 20160615
  2. AMPYRA [Suspect]
     Active Substance: DALFAMPRIDINE
     Indication: MULTIPLE SCLEROSIS RELAPSE
     Dosage: UNK UNK,UNK
     Route: 048
  3. CENTRUM SILVER [ASCORBIC ACID;BETACAROTENE;BIOTIN;CALCIUM;CHROMIUM;COL [Concomitant]
     Dosage: UNK
  4. OXYBUTYNIN. [Concomitant]
     Active Substance: OXYBUTYNIN CHLORIDE
     Dosage: STRENGTH: 5 MG
  5. PROZAC [Concomitant]
     Active Substance: FLUOXETINE HYDROCHLORIDE
     Dosage: UNK
     Route: 048
  6. SIMVASTATIN. [Concomitant]
     Active Substance: SIMVASTATIN
     Dosage: STRENGTH: 20 MG
  7. FLUOXETINE HYDROCHLORIDE. [Concomitant]
     Active Substance: FLUOXETINE HYDROCHLORIDE
     Dosage: STRENGTH: 40 MG
  8. ACTIVELLA [Concomitant]
     Active Substance: ESTRADIOL\NORETHINDRONE ACETATE
     Dosage: 0.5 TO 0.1 MG
  9. BACLOFEN. [Concomitant]
     Active Substance: BACLOFEN
     Dosage: STRENGTH: 10 MG
     Route: 048
  10. VITAMIN D3 [Concomitant]
     Active Substance: CHOLECALCIFEROL
     Dosage: STRENGTH: 5000 UNIT
  11. AMANTADINE. [Suspect]
     Active Substance: AMANTADINE HYDROCHLORIDE
     Dosage: UNK UNK,UNK
     Route: 065
  12. CALCIUM [Concomitant]
     Active Substance: CALCIUM
     Dosage: 600+D
  13. NALTREXONE [Concomitant]
     Active Substance: NALTREXONE
     Dosage: UNK
     Route: 048

REACTIONS (1)
  - Asphyxia [Fatal]

NARRATIVE: CASE EVENT DATE: 20160615
